FAERS Safety Report 10052944 (Version 1)
Quarter: 2014Q1

REPORT INFORMATION
  Report Type: Spontaneous
  Country: IN (occurrence: None)
  Receive Date: 20140331
  Receipt Date: 20140331
  Transmission Date: 20141002
  Serious: Yes (Death)
  Sender: FDA-Public Use
  Company Number: 2014P1002397

PATIENT
  Age: 20 Year
  Sex: Female

DRUGS (2)
  1. EPINEPHRINE [Suspect]
     Indication: ANAPHYLACTIC REACTION
     Route: 042
  2. FERISE 5 (IRON SUCROSE USP 5 ML INJECTION) [Suspect]
     Indication: IRON DEFICIENCY ANAEMIA

REACTIONS (5)
  - Maternal exposure during pregnancy [None]
  - Platelet count increased [None]
  - Anaphylactic reaction [None]
  - Cardiac arrest [None]
  - Drug ineffective [None]
